FAERS Safety Report 5381903-0 (Version None)
Quarter: 2007Q3

REPORT INFORMATION
  Report Type: 
  Country: None (occurrence: None)
  Receive Date: 20070705
  Receipt Date: 20070625
  Transmission Date: 20080115
  Serious: Yes (Other)
  Sender: FDA-Public Use
  Company Number: 2007RL000293

PATIENT
  Age: 63 Year
  Sex: Male

DRUGS (6)
  1. OMACOR [Suspect]
     Indication: BLOOD TRIGLYCERIDES INCREASED
     Dosage: 2 GM QD PO
     Route: 048
     Dates: start: 20070511
  2. WARFARIN SODIUM [Suspect]
     Indication: DRUG USE FOR UNKNOWN INDICATION
     Dosage: 10 MG QD PO
     Route: 048
     Dates: start: 20070501, end: 20070617
  3. BETA-BLOCKER [Concomitant]
  4. BLOOD PRESSURE MEDICATIONS [Concomitant]
  5. COUMADIN [Concomitant]
  6. ECOTRIN [Concomitant]

REACTIONS (2)
  - INTERNATIONAL NORMALISED RATIO DECREASED [None]
  - PROTHROMBIN TIME SHORTENED [None]
